FAERS Safety Report 15374163 (Version 12)
Quarter: 2019Q3

REPORT INFORMATION
  Report Type: Spontaneous
  Country: DE (occurrence: DE)
  Receive Date: 20180912
  Receipt Date: 20190719
  Transmission Date: 20191004
  Serious: Yes (Life-Threatening, Hospitalization, Other)
  Sender: FDA-Public Use
  Company Number: PHHY2018DE097100

PATIENT
  Age: 58 Year
  Sex: Male
  Weight: 94 kg

DRUGS (20)
  1. EXFORGE [Suspect]
     Active Substance: AMLODIPINE BESYLATE\VALSARTAN
     Indication: HYPERTENSION
     Dosage: 160 MG, QD
     Route: 065
     Dates: start: 201509
  2. VALSARTAN 1 A PHARMA [Suspect]
     Active Substance: VALSARTAN
     Indication: HYPERTENSION
     Dosage: 160 MG, UNK
     Route: 065
     Dates: start: 201412
  3. METOPROLOL. [Concomitant]
     Active Substance: METOPROLOL
     Indication: HYPERTENSION
     Dosage: 47.5 MG, QD
     Route: 065
     Dates: start: 2010
  4. MOVICOL [Concomitant]
     Active Substance: POLYETHYLENE GLYCOL 3350\POTASSIUM CHLORIDE\SODIUM BICARBONATE\SODIUM CHLORIDE
     Indication: PRODUCT USED FOR UNKNOWN INDICATION
     Dosage: UNK UNK, BID
     Route: 065
  5. VALSARTAN. [Suspect]
     Active Substance: VALSARTAN
     Dosage: 80 MG, QD
     Route: 048
  6. AMLODIPIN [Concomitant]
     Active Substance: AMLODIPINE BESYLATE
     Indication: HYPERTENSION
     Dosage: 10 MG, QD
     Route: 065
     Dates: start: 201412
  7. VALSARTAN 1 A PHARMA [Suspect]
     Active Substance: VALSARTAN
     Dosage: 160 MG, UNK
     Route: 065
     Dates: start: 20151013, end: 20161205
  8. VALSARTAN 1 A PHARMA [Suspect]
     Active Substance: VALSARTAN
     Dosage: 320 MG, QD
     Route: 065
     Dates: start: 20161206, end: 201809
  9. MOXONIDIN [Concomitant]
     Active Substance: MOXONIDINE
     Dosage: 0.4 OT, QD
     Route: 065
     Dates: start: 201706
  10. VALSARTAN. [Suspect]
     Active Substance: VALSARTAN
     Indication: HYPERTENSION
     Dosage: UNK UNK, QD
     Route: 048
  11. MULTI VITAMIN [Concomitant]
     Active Substance: VITAMINS
     Indication: PRODUCT USED FOR UNKNOWN INDICATION
     Dosage: UNK
     Route: 065
  12. PANTOPRAZOLE [Concomitant]
     Active Substance: PANTOPRAZOLE
     Indication: PRODUCT USED FOR UNKNOWN INDICATION
     Dosage: 20 MG, QD
     Route: 065
  13. NEPRESOL [Concomitant]
     Indication: PRODUCT USED FOR UNKNOWN INDICATION
     Dosage: 25 MG, QD
     Route: 048
     Dates: start: 201706
  14. MOXONIDIN [Concomitant]
     Active Substance: MOXONIDINE
     Indication: HYPERTENSION
     Dosage: 0.4 MG, QD
     Route: 065
     Dates: start: 2014
  15. VALSARTAN. [Suspect]
     Active Substance: VALSARTAN
     Dosage: 160 MG, QD
     Route: 065
     Dates: start: 201510
  16. VALSARTAN AAA [Suspect]
     Active Substance: VALSARTAN
     Indication: HYPERTENSION
     Dosage: 320 MG, QD
     Route: 065
     Dates: start: 201412
  17. METOPROLOL. [Concomitant]
     Active Substance: METOPROLOL
     Dosage: 47.5 MG, BID (CONC 95 MG)
     Route: 065
     Dates: start: 201510
  18. RIOPAN [Concomitant]
     Indication: PRODUCT USED FOR UNKNOWN INDICATION
     Dosage: UNK UNK, TID
     Route: 048
  19. AMLODIPINE [Concomitant]
     Active Substance: AMLODIPINE BESYLATE
     Indication: PRODUCT USED FOR UNKNOWN INDICATION
     Dosage: 5 MG, QD
     Route: 048
  20. PANTOZOL [Concomitant]
     Active Substance: PANTOPRAZOLE SODIUM
     Indication: PRODUCT USED FOR UNKNOWN INDICATION
     Dosage: 40 MG, BID
     Route: 048

REACTIONS (50)
  - Prostatitis [Unknown]
  - Gastritis [Unknown]
  - Eosinophil percentage decreased [Unknown]
  - Basophil percentage decreased [Unknown]
  - Haemoglobin decreased [Unknown]
  - Spinal subarachnoid haemorrhage [Unknown]
  - Osteochondrosis [Unknown]
  - Red blood cell count decreased [Recovering/Resolving]
  - Blood cholinesterase decreased [Unknown]
  - Renal mass [Unknown]
  - Gastrooesophageal reflux disease [Unknown]
  - Encephalitis viral [Unknown]
  - Neutrophil percentage increased [Unknown]
  - Gastrointestinal infection [Unknown]
  - Pyrexia [Unknown]
  - Plantar fasciitis [Unknown]
  - Bursitis [Unknown]
  - Bone marrow oedema [Unknown]
  - C-reactive protein increased [Unknown]
  - Activated partial thromboplastin time shortened [Unknown]
  - Specific gravity urine decreased [Unknown]
  - Blood chloride increased [Unknown]
  - Pain in extremity [Unknown]
  - Oedema peripheral [Unknown]
  - Blood creatinine increased [Unknown]
  - Blood urea increased [Recovering/Resolving]
  - Tachycardia [Unknown]
  - Myocarditis [Unknown]
  - White blood cell count increased [Recovering/Resolving]
  - Gastroenteritis [Unknown]
  - Haematocrit decreased [Unknown]
  - Oedematous kidney [Unknown]
  - Glomerular filtration rate decreased [Unknown]
  - Benign prostatic hyperplasia [Unknown]
  - Gastric disorder [Unknown]
  - Urinary tract infection [Unknown]
  - Palpitations [Unknown]
  - Acute coronary syndrome [Unknown]
  - Periostitis [Unknown]
  - Gallbladder cholesterolosis [Unknown]
  - Fatigue [Unknown]
  - Renal cell carcinoma [Recovering/Resolving]
  - Erythroblast count decreased [Unknown]
  - Monocyte count increased [Unknown]
  - N-terminal prohormone brain natriuretic peptide increased [Unknown]
  - Meningeal disorder [Unknown]
  - Sciatica [Unknown]
  - Renal cyst [Unknown]
  - Face oedema [Unknown]
  - Vomiting [Unknown]

NARRATIVE: CASE EVENT DATE: 201412
